FAERS Safety Report 15587736 (Version 11)
Quarter: 2020Q1

REPORT INFORMATION
  Report Type: Spontaneous
  Country: US (occurrence: US)
  Receive Date: 20181105
  Receipt Date: 20200116
  Transmission Date: 20200409
  Serious: No
  Sender: FDA-Public Use
  Company Number: US-PFIZER INC-2018393166

PATIENT
  Age: 51 Year
  Sex: Female
  Weight: 73 kg

DRUGS (6)
  1. CITRACAL [Concomitant]
     Active Substance: CALCIUM CITRATE
     Dosage: UNK
  2. IBRANCE [Suspect]
     Active Substance: PALBOCICLIB
     Indication: BREAST CANCER METASTATIC
     Dosage: 125 MG, CYCLIC (1 CAPSULE DAILY FOR 21 DAYS, THEN 7 DAYS OFF (Q28 DAYS))
     Route: 048
     Dates: start: 20180911, end: 20190206
  3. ZOLADEX [Concomitant]
     Active Substance: GOSERELIN ACETATE
     Dosage: UNK
  4. IBRANCE [Suspect]
     Active Substance: PALBOCICLIB
     Dosage: 125 MG, CYCLIC (1 CAPSULE DAILY FOR 21 DAYS, THEN 7 DAYS OFF)
     Route: 048
     Dates: start: 20190301
  5. ZOMETA [Concomitant]
     Active Substance: ZOLEDRONIC ACID
     Dosage: UNK
  6. LETROZOLE. [Concomitant]
     Active Substance: LETROZOLE
     Dosage: UNK

REACTIONS (16)
  - Bronchitis [Unknown]
  - Dyspnoea [Not Recovered/Not Resolved]
  - Breast pain [Unknown]
  - Fatigue [Not Recovered/Not Resolved]
  - Tremor [Not Recovered/Not Resolved]
  - Joint swelling [Unknown]
  - Migraine [Unknown]
  - Arthralgia [Unknown]
  - Somnolence [Unknown]
  - Asthenia [Unknown]
  - Dry skin [Unknown]
  - Nausea [Unknown]
  - Feeling hot [Not Recovered/Not Resolved]
  - Alopecia [Not Recovered/Not Resolved]
  - Night sweats [Not Recovered/Not Resolved]
  - Epigastric discomfort [Unknown]

NARRATIVE: CASE EVENT DATE: 2018
